FAERS Safety Report 19544868 (Version 1)
Quarter: 2021Q3

REPORT INFORMATION
  Report Type: Report from Study
  Country: BR (occurrence: BR)
  Receive Date: 20210713
  Receipt Date: 20210713
  Transmission Date: 20211014
  Serious: Yes (Hospitalization)
  Sender: FDA-Public Use
  Company Number: NVSC2021BR154415

PATIENT
  Age: 62 Year
  Sex: Male

DRUGS (2)
  1. ONBRIZE [Suspect]
     Active Substance: INDACATEROL MALEATE
     Indication: PRODUCT USED FOR UNKNOWN INDICATION
     Dosage: 300 UG
     Route: 065
     Dates: start: 2015, end: 2019
  2. ONBRIZE [Suspect]
     Active Substance: INDACATEROL MALEATE
     Dosage: 300 UG,15 DAYS AGO
     Route: 065

REACTIONS (4)
  - Dysphonia [Recovering/Resolving]
  - Respiratory arrest [Recovered/Resolved]
  - Coma [Recovered/Resolved]
  - Reflux laryngitis [Recovering/Resolving]

NARRATIVE: CASE EVENT DATE: 20200129
